FAERS Safety Report 16848884 (Version 1)
Quarter: 2019Q3

REPORT INFORMATION
  Report Type: Other
  Country: US (occurrence: ES)
  Receive Date: 20190925
  Receipt Date: 20190925
  Transmission Date: 20191005
  Serious: Yes (Hospitalization, Other)
  Sender: FDA-Public Use
  Company Number: ES-DEXPHARM-20190822

PATIENT
  Age: 94 Year
  Sex: Male

DRUGS (5)
  1. PREDNISONE. [Interacting]
     Active Substance: PREDNISONE
  2. DICLOFENAC [Suspect]
     Active Substance: DICLOFENAC
  3. ENALAPRIL [Interacting]
     Active Substance: ENALAPRIL
  4. METHOTREXATE. [Interacting]
     Active Substance: METHOTREXATE
     Indication: RHEUMATOID ARTHRITIS
     Dosage: 15 MG/WEEK
  5. RABENPAZOLE [Interacting]
     Active Substance: RABEPRAZOLE

REACTIONS (3)
  - Bicytopenia [Unknown]
  - Toxicity to various agents [Unknown]
  - Drug interaction [Unknown]
